FAERS Safety Report 8978329 (Version 1)
Quarter: 2012Q4

REPORT INFORMATION
  Report Type: 
  Country: US (occurrence: US)
  Receive Date: 20121221
  Receipt Date: 20121221
  Transmission Date: 20130627
  Serious: Yes (Hospitalization)
  Sender: FDA-Public Use
  Company Number: US-AMGEN-USASP2012077414

PATIENT
  Age: 53 Year
  Sex: Female
  Weight: 58.96 kg

DRUGS (6)
  1. ENBREL [Suspect]
     Indication: RHEUMATOID ARTHRITIS
     Dosage: 50 mg, qwk
     Route: 058
     Dates: start: 20091214
  2. DAYPRO [Concomitant]
     Indication: RHEUMATOID ARTHRITIS
     Dosage: 600 mg, bid
     Route: 048
  3. BENICAR [Concomitant]
     Indication: HYPERTENSION
     Dosage: 20 mg, qd
     Route: 048
  4. LORTAB                             /00607101/ [Concomitant]
     Indication: PAIN
     Dosage: 7.5 mg, prn
     Route: 048
  5. PREMARIN [Concomitant]
     Indication: MENOPAUSE
     Dosage: 0.625 mg, qd
     Route: 048
  6. SYNTHROID [Concomitant]
     Dosage: UNK UNK, qd
     Route: 048

REACTIONS (21)
  - Medical device removal [Recovered/Resolved]
  - Localised infection [Recovered/Resolved]
  - Cellulitis [Recovered/Resolved]
  - Staphylococcal infection [Recovered/Resolved]
  - Injection site mass [Not Recovered/Not Resolved]
  - Skin fragility [Not Recovered/Not Resolved]
  - Joint arthroplasty [Recovered/Resolved]
  - Pain in extremity [Not Recovered/Not Resolved]
  - Joint swelling [Not Recovered/Not Resolved]
  - Oedema peripheral [Not Recovered/Not Resolved]
  - Musculoskeletal pain [Not Recovered/Not Resolved]
  - Hypersensitivity [Unknown]
  - Arthritis [Unknown]
  - Arthralgia [Not Recovered/Not Resolved]
  - Blister infected [Not Recovered/Not Resolved]
  - Infection [Recovered/Resolved]
  - Injection site erythema [Not Recovered/Not Resolved]
  - Injection site swelling [Not Recovered/Not Resolved]
  - Injection site pain [Not Recovered/Not Resolved]
  - Injection site reaction [Not Recovered/Not Resolved]
  - Injection site bruising [Not Recovered/Not Resolved]
